FAERS Safety Report 8056619-2 (Version None)
Quarter: 2012Q1

REPORT INFORMATION
  Report Type: 
  Country: None (occurrence: None)
  Receive Date: 20120119
  Receipt Date: 20120109
  Transmission Date: 20120608
  Serious: Yes (Other)
  Sender: FDA-Public Use
  Company Number: CHPA2012US000817

PATIENT
  Age: 50 Year
  Sex: Female

DRUGS (2)
  1. EXCEDRIN EXTRA STRENGTH CAPLETS [Suspect]
     Indication: FIBROMYALGIA
     Dosage: 4-8 DF, QD
     Route: 048
  2. EXCEDRIN EXTRA STRENGTH CAPLETS [Suspect]
     Indication: ARTHRITIS

REACTIONS (6)
  - GASTRIC ULCER [None]
  - OFF LABEL USE [None]
  - INCORRECT DRUG ADMINISTRATION DURATION [None]
  - FIBROMYALGIA [None]
  - DRUG DEPENDENCE [None]
  - THERAPEUTIC RESPONSE UNEXPECTED [None]
